FAERS Safety Report 14898537 (Version 1)
Quarter: 2018Q2

REPORT INFORMATION
  Report Type: Report from Study
  Country: AU (occurrence: AU)
  Receive Date: 20180515
  Receipt Date: 20180515
  Transmission Date: 20180711
  Serious: Yes (Other)
  Sender: FDA-Public Use
  Company Number: AU-OTSUKA-2018_012296

PATIENT
  Age: 36 Year
  Sex: Male

DRUGS (5)
  1. NO DRUG [Suspect]
     Active Substance: UNSPECIFIED INGREDIENT
  2. LATUDA [Suspect]
     Active Substance: LURASIDONE HYDROCHLORIDE
     Indication: PRODUCT USED FOR UNKNOWN INDICATION
     Dosage: UNK
     Route: 065
  3. SOLIAN [Suspect]
     Active Substance: AMISULPRIDE
     Indication: PRODUCT USED FOR UNKNOWN INDICATION
     Route: 065
  4. ABILIFY MAINTENA [Suspect]
     Active Substance: ARIPIPRAZOLE
     Indication: PRODUCT USED FOR UNKNOWN INDICATION
     Dosage: UNK
     Route: 065
  5. SAPHRIS [Suspect]
     Active Substance: ASENAPINE MALEATE
     Indication: SCHIZOPHRENIA
     Dosage: UNK
     Route: 065

REACTIONS (8)
  - Sedation [Unknown]
  - Anosognosia [Unknown]
  - Negative thoughts [Unknown]
  - Sexual dysfunction [Unknown]
  - Pyramidal tract syndrome [Unknown]
  - Akathisia [Unknown]
  - Therapy non-responder [Unknown]
  - Drug effect incomplete [Unknown]
